FAERS Safety Report 4478857-8 (Version None)
Quarter: 2004Q4

REPORT INFORMATION
  Report Type: 
  Country: None (occurrence: None)
  Receive Date: 20041013
  Receipt Date: 20040816
  Transmission Date: 20050328
  Serious: No
  Sender: FDA-Public Use
  Company Number: 2004GB01228

PATIENT
  Age: 37 Year
  Sex: Female

DRUGS (5)
  1. ATENOLOL [Suspect]
     Indication: HYPERTENSION
     Dosage: 50 MG PO
     Route: 048
     Dates: start: 20040216
  2. VERMOX [Suspect]
  3. STEMETIL ^AVENTIS PHARMA^ [Suspect]
     Indication: VOMITING
     Dosage: 3 MG
  4. RANITIDINE [Suspect]
     Indication: DYSPEPSIA
     Dosage: 150 MG PO
     Route: 048
     Dates: start: 20031126
  5. AMOXICILLIN [Suspect]
     Indication: URINARY TRACT INFECTION
     Dosage: 500 MG PO
     Route: 048
     Dates: start: 20040408

REACTIONS (2)
  - DRUG EXPOSURE DURING PREGNANCY [None]
  - PREMATURE LABOUR [None]
